FAERS Safety Report 12041793 (Version 1)
Quarter: 2016Q1

REPORT INFORMATION
  Report Type: Other
  Country: US (occurrence: US)
  Receive Date: 20160208
  Receipt Date: 20160208
  Transmission Date: 20160526
  Serious: Yes (Other)
  Sender: FDA-Public Use
  Company Number: US-GUTHY-RENKER LLC-1047498

PATIENT
  Age: 38 Year
  Sex: Female

DRUGS (3)
  1. IT COSMETIC BYE BYE FOUNDATON SPF 50+ [Suspect]
     Active Substance: TITANIUM DIOXIDE\ZINC OXIDE
     Indication: PROPHYLAXIS
     Route: 061
     Dates: start: 20151219, end: 20160110
  2. TYLENOL [Concomitant]
     Active Substance: ACETAMINOPHEN
  3. IT COSMETIC BYE BYE FOUNDATON SPF 50+ [Suspect]
     Active Substance: TITANIUM DIOXIDE\ZINC OXIDE
     Indication: PHOTOSENSITIVITY REACTION
     Route: 061
     Dates: start: 20151219, end: 20160110

REACTIONS (2)
  - Hypersensitivity [None]
  - Blister [Recovering/Resolving]

NARRATIVE: CASE EVENT DATE: 20160110
